FAERS Safety Report 10149495 (Version 1)
Quarter: 2014Q2

REPORT INFORMATION
  Report Type: Spontaneous
  Country: CA (occurrence: CA)
  Receive Date: 20140502
  Receipt Date: 20140502
  Transmission Date: 20141212
  Serious: Yes (Other)
  Sender: FDA-Public Use
  Company Number: CA-PFIZER INC-2014118361

PATIENT
  Age: 64 Year
  Sex: Male

DRUGS (3)
  1. MORPHINE SULFATE [Suspect]
     Route: 042
  2. HEROIN [Suspect]
     Route: 055
  3. NICOTINE [Suspect]
     Route: 055

REACTIONS (3)
  - Polysubstance dependence [Unknown]
  - Substance abuse [Unknown]
  - Exposure to violent event [Unknown]
